FAERS Safety Report 17555875 (Version 2)
Quarter: 2020Q4

REPORT INFORMATION
  Report Type: Spontaneous
  Country: FR (occurrence: FR)
  Receive Date: 20200318
  Receipt Date: 20201019
  Transmission Date: 20210113
  Serious: Yes (Hospitalization)
  Sender: FDA-Public Use
  Company Number: FR-PFIZER INC-2020111550

PATIENT
  Age: 44 Year
  Sex: Male

DRUGS (8)
  1. XANAX [Suspect]
     Active Substance: ALPRAZOLAM
     Dosage: UNK
     Route: 065
  2. VALIUM [Suspect]
     Active Substance: DIAZEPAM
     Dosage: UNK; 4 TO 5 TABLETS PER DAY
     Route: 048
     Dates: start: 2018
  3. SERESTA [Suspect]
     Active Substance: OXAZEPAM
     Dosage: UNK
     Route: 065
  4. CANNABIS [Suspect]
     Active Substance: CANNABIS SATIVA SUBSP. INDICA TOP
     Dosage: UNK
     Route: 065
  5. COCAINE [Suspect]
     Active Substance: COCAINE
     Dosage: UNK
     Route: 065
  6. ALCOHOL. [Suspect]
     Active Substance: ALCOHOL
     Dosage: UNK
     Route: 065
  7. STILNOX [Suspect]
     Active Substance: ZOLPIDEM TARTRATE
     Dosage: UNK
     Route: 065
  8. LEXOTAN [Suspect]
     Active Substance: BROMAZEPAM
     Dosage: UNK
     Route: 065
     Dates: start: 2019

REACTIONS (4)
  - Suicide attempt [Recovered/Resolved]
  - Intentional product misuse [Unknown]
  - Suicidal ideation [Recovered/Resolved]
  - Depressive symptom [Recovering/Resolving]

NARRATIVE: CASE EVENT DATE: 2020
